FAERS Safety Report 9734053 (Version 1)
Quarter: 2013Q4

REPORT INFORMATION
  Report Type: Spontaneous
  Country: DK (occurrence: DK)
  Receive Date: 20131205
  Receipt Date: 20131205
  Transmission Date: 20140711
  Serious: Yes (Other)
  Sender: FDA-Public Use
  Company Number: DK-ACTAVIS-2013-22203

PATIENT
  Age: 59 Year
  Sex: Female
  Weight: 64 kg

DRUGS (4)
  1. CLOPIDOGREL ACTAVIS [Suspect]
     Indication: THROMBOSIS PROPHYLAXIS
     Dosage: 75 MG, DAILY
     Route: 048
     Dates: start: 20130627, end: 20130627
  2. COVERSYL COMP [Concomitant]
     Indication: CARDIOMYOPATHY
     Dosage: UNK
     Route: 065
  3. CARVEDILOL HEXAL [Concomitant]
     Indication: CARDIOMYOPATHY
     Dosage: UNK
     Route: 065
  4. SEROXAT [Concomitant]
     Indication: DEPRESSION
     Dosage: UNK
     Route: 065

REACTIONS (12)
  - Upper airway obstruction [Recovering/Resolving]
  - Tongue paralysis [Recovering/Resolving]
  - Speech disorder [Recovering/Resolving]
  - Tension [Recovering/Resolving]
  - Fatigue [Recovering/Resolving]
  - Pruritus [Recovering/Resolving]
  - Oral pain [Recovering/Resolving]
  - Eyelid oedema [Recovering/Resolving]
  - Lacrimation increased [Recovering/Resolving]
  - Bedridden [Recovering/Resolving]
  - Decreased appetite [Recovering/Resolving]
  - Skin discolouration [Recovering/Resolving]
